FAERS Safety Report 23071526 (Version 1)
Quarter: 2023Q4

REPORT INFORMATION
  Report Type: Spontaneous
  Country: JP (occurrence: JP)
  Receive Date: 20231017
  Receipt Date: 20231017
  Transmission Date: 20240110
  Serious: Yes (Hospitalization)
  Sender: FDA-Public Use
  Company Number: JP-002147023-NVSJ2023JP014879

PATIENT
  Age: 22 Year
  Sex: Female
  Weight: 44 kg

DRUGS (4)
  1. FEMARA [Suspect]
     Active Substance: LETROZOLE
     Indication: Controlled ovarian stimulation
     Dosage: 2.5 MG
     Route: 048
     Dates: start: 20230719, end: 20230730
  2. OVIDREL [Suspect]
     Active Substance: CHORIOGONADOTROPIN ALFA
     Indication: Controlled ovarian stimulation
     Dosage: 250 UG, QD
     Route: 058
     Dates: start: 20230717
  3. GONADOTROPHIN, CHORIONIC [Suspect]
     Active Substance: GONADOTROPHIN, CHORIONIC
     Indication: Controlled ovarian stimulation
     Dosage: 150 IU, QD
     Route: 058
     Dates: start: 20230714, end: 20230717
  4. CABERGOLINE [Concomitant]
     Active Substance: CABERGOLINE
     Indication: Product used for unknown indication
     Dosage: UNK
     Route: 048
     Dates: start: 20230719, end: 20230801

REACTIONS (1)
  - Ovarian hyperstimulation syndrome [Recovering/Resolving]

NARRATIVE: CASE EVENT DATE: 20230719
